FAERS Safety Report 23715034 (Version 2)
Quarter: 2025Q2

REPORT INFORMATION
  Report Type: Report from Study
  Country: ES (occurrence: ES)
  Receive Date: 20240406
  Receipt Date: 20250418
  Transmission Date: 20250716
  Serious: Yes (Life-Threatening, Hospitalization, Other)
  Sender: AUROBINDO
  Company Number: ES-PFIZER INC-PV202400039663

PATIENT
  Age: 35 Year
  Sex: Male

DRUGS (3)
  1. VORICONAZOLE [Suspect]
     Active Substance: VORICONAZOLE
     Indication: Respiratory distress
     Route: 048
  2. VORICONAZOLE [Suspect]
     Active Substance: VORICONAZOLE
     Indication: Scedosporium infection
     Dosage: 40 MILLIGRAM, ONCE A DAY (40 MG, DAILY, NEBULIZATION)
     Route: 065
  3. VORICONAZOLE [Suspect]
     Active Substance: VORICONAZOLE
     Dosage: 80 MILLIGRAM, ONCE A DAY (40 MG, 2X/DAY, NEBULIZATION)
     Route: 065

REACTIONS (1)
  - Drug ineffective [Unknown]
